FAERS Safety Report 6526844-8 (Version None)
Quarter: 2010Q1

REPORT INFORMATION
  Report Type: 
  Country: None (occurrence: None)
  Receive Date: 20100105
  Receipt Date: 20091225
  Transmission Date: 20100710
  Serious: No
  Sender: FDA-Public Use
  Company Number: JP-SANOFI-AVENTIS-2009SA007375

PATIENT
  Sex: Female

DRUGS (13)
  1. ALLEGRA [Suspect]
     Indication: URTICARIA
     Route: 048
     Dates: start: 20091030, end: 20091203
  2. LOXOPROFEN [Concomitant]
     Indication: HEADACHE
     Route: 048
     Dates: start: 20091120, end: 20091210
  3. NEUROTROPIN [Concomitant]
     Indication: HERPES ZOSTER
     Dosage: DOSE:4 UNIT(S)
     Route: 048
     Dates: start: 20090817, end: 20091208
  4. METHYCOBAL [Concomitant]
     Indication: HERPES ZOSTER
     Route: 048
     Dates: start: 20090825, end: 20091208
  5. DAONIL [Concomitant]
     Indication: DIABETES MELLITUS
     Route: 048
     Dates: start: 20030502
  6. BEZATOL - SLOW RELEASE [Concomitant]
     Indication: DYSLIPIDAEMIA
     Route: 048
     Dates: start: 20050223
  7. GASMOTIN [Concomitant]
     Route: 048
     Dates: start: 20040520
  8. MELBIN [Concomitant]
     Indication: DIABETES MELLITUS
     Route: 048
     Dates: start: 20050422
  9. MYSLEE [Concomitant]
     Indication: INSOMNIA
     Route: 048
     Dates: start: 20061127
  10. MUCODYNE [Concomitant]
     Route: 048
     Dates: start: 20070926
  11. THEOPHYLLINE [Concomitant]
     Route: 048
     Dates: start: 20070918
  12. KIPRES [Concomitant]
     Route: 048
     Dates: start: 20070926
  13. ASTOMIN [Concomitant]
     Route: 048
     Dates: start: 20070926

REACTIONS (1)
  - EOSINOPHILIA [None]
